FAERS Safety Report 8546625-3 (Version None)
Quarter: 2012Q3

REPORT INFORMATION
  Report Type: 
  Country: None (occurrence: None)
  Receive Date: 20120727
  Receipt Date: 20120103
  Transmission Date: 20120928
  Serious: No
  Sender: FDA-Public Use
  Company Number: US-ASTRAZENECA-2012SE00530

PATIENT
  Age: 26 Year
  Sex: Female
  Weight: 97.1 kg

DRUGS (1)
  1. SEROQUEL XR [Suspect]
     Indication: BIPOLAR DISORDER
     Route: 048
     Dates: start: 20111101

REACTIONS (4)
  - DRUG DOSE OMISSION [None]
  - ANGER [None]
  - INSOMNIA [None]
  - DRUG TOLERANCE [None]
